FAERS Safety Report 25487247 (Version 3)
Quarter: 2025Q3

REPORT INFORMATION
  Report Type: Spontaneous
  Country: EU (occurrence: EU)
  Receive Date: 20250627
  Receipt Date: 20250808
  Transmission Date: 20251020
  Serious: Yes (Disabling, Other)
  Sender: AUROBINDO
  Company Number: EU-AUROBINDO-AUR-APL-2025-029413

PATIENT
  Age: 26 Year
  Sex: Male

DRUGS (1)
  1. FINASTERIDE [Suspect]
     Active Substance: FINASTERIDE
     Indication: Androgenetic alopecia
     Dosage: 1 MILLIGRAM, ONCE A DAY
     Route: 048

REACTIONS (4)
  - Ejaculation failure [Not Recovered/Not Resolved]
  - Genital hypoaesthesia [Not Recovered/Not Resolved]
  - Post 5-alpha-reductase inhibitor syndrome [Not Recovered/Not Resolved]
  - Peripheral venous disease [Not Recovered/Not Resolved]
